FAERS Safety Report 8765001 (Version 2)
Quarter: 2013Q1

REPORT INFORMATION
  Report Type: Spontaneous
  Country: US (occurrence: US)
  Receive Date: 20120903
  Receipt Date: 20130111
  Transmission Date: 20140127
  Serious: No
  Sender: FDA-Public Use
  Company Number: US-009507513-1208USA000571

PATIENT
  Age: 20 Year
  Sex: Female
  Weight: 73.16 kg

DRUGS (1)
  1. IMPLANON [Suspect]
     Indication: CONTRACEPTION
     Dosage: 1 DF, UP TO TO 3 YEARS
     Route: 059
     Dates: start: 20120108

REACTIONS (4)
  - Glossodynia [Unknown]
  - Movement disorder [Unknown]
  - Amenorrhoea [Recovered/Resolved]
  - Metrorrhagia [Unknown]
